FAERS Safety Report 12607160 (Version 2)
Quarter: 2016Q3

REPORT INFORMATION
  Report Type: Spontaneous
  Country: US (occurrence: US)
  Receive Date: 20160729
  Receipt Date: 20160803
  Transmission Date: 20161109
  Serious: Yes (Life-Threatening, Hospitalization, Other)
  Sender: FDA-Public Use
  Company Number: US-SUNOVION-2016SUN001827

PATIENT
  Age: 89 Year
  Sex: Female
  Weight: 37.64 kg

DRUGS (6)
  1. BROVANA [Suspect]
     Active Substance: ARFORMOTEROL TARTRATE
     Indication: BRONCHIECTASIS
     Dosage: 15MCG/2ML, BID
     Route: 055
     Dates: start: 2016, end: 2016
  2. BROVANA [Suspect]
     Active Substance: ARFORMOTEROL TARTRATE
     Indication: ASTHMA
  3. LEVAQUIN [Suspect]
     Active Substance: LEVOFLOXACIN
     Dosage: UNK
  4. BUDESONIDE. [Suspect]
     Active Substance: BUDESONIDE
     Dosage: UNK
  5. BROVANA [Suspect]
     Active Substance: ARFORMOTEROL TARTRATE
     Indication: COUGH
  6. PREDNISONE. [Suspect]
     Active Substance: PREDNISONE
     Dosage: UNK

REACTIONS (8)
  - Pelvic fracture [Unknown]
  - Candida infection [Recovered/Resolved]
  - Cough [Not Recovered/Not Resolved]
  - Epistaxis [Unknown]
  - Unresponsive to stimuli [Unknown]
  - Thyroid disorder [Unknown]
  - Fall [Unknown]
  - Off label use [Unknown]

NARRATIVE: CASE EVENT DATE: 2016
